FAERS Safety Report 21917611 (Version 1)
Quarter: 2023Q1

REPORT INFORMATION
  Report Type: Spontaneous
  Country: US (occurrence: US)
  Receive Date: 20230127
  Receipt Date: 20230127
  Transmission Date: 20230418
  Serious: Yes (Other)
  Sender: FDA-Public Use
  Company Number: US-NOVOPROD-1014749

PATIENT
  Age: 73 Year
  Sex: Female

DRUGS (1)
  1. OZEMPIC [Suspect]
     Active Substance: SEMAGLUTIDE
     Indication: Type 2 diabetes mellitus
     Dosage: 1 MG
     Route: 058
     Dates: start: 202101, end: 20230116

REACTIONS (10)
  - Vulval cancer [Unknown]
  - Squamous cell carcinoma of the vagina [Unknown]
  - Lichen sclerosus [Unknown]
  - Condition aggravated [Unknown]
  - Gastric hypomotility [Unknown]
  - Condition aggravated [Unknown]
  - Gastrooesophageal reflux disease [Unknown]
  - Condition aggravated [Unknown]
  - Constipation [Unknown]
  - Dehydration [Unknown]

NARRATIVE: CASE EVENT DATE: 20230112
